FAERS Safety Report 18711305 (Version 1)
Quarter: 2021Q1

REPORT INFORMATION
  Report Type: Spontaneous
  Country: US (occurrence: US)
  Receive Date: 20210106
  Receipt Date: 20210106
  Transmission Date: 20210419
  Serious: No
  Sender: FDA-Public Use
  Company Number: None

PATIENT
  Age: 38 Year
  Sex: Female
  Weight: 61.65 kg

DRUGS (4)
  1. HIZENTRA [Suspect]
     Active Substance: HUMAN IMMUNOGLOBULIN G
     Dosage: ?          OTHER FREQUENCY:ONCE WEEKLY;?
     Route: 058
     Dates: start: 20210104
  2. IBUPROFEN 200MG [Concomitant]
     Active Substance: IBUPROFEN
  3. DIPHENHYDRAMINE 25MG [Concomitant]
     Active Substance: DIPHENHYDRAMINE
  4. LORATADINE 10MG [Concomitant]
     Active Substance: LORATADINE

REACTIONS (4)
  - Infusion site swelling [None]
  - Infusion site mass [None]
  - Infusion site scar [None]
  - Infusion site pain [None]

NARRATIVE: CASE EVENT DATE: 20210104
